FAERS Safety Report 7193370-5 (Version None)
Quarter: 2010Q4

REPORT INFORMATION
  Report Type: 
  Country: None (occurrence: None)
  Receive Date: 20101223
  Receipt Date: 20101216
  Transmission Date: 20110411
  Serious: Yes (Hospitalization)
  Sender: FDA-Public Use
  Company Number: FR-SANOFI-AVENTIS-2010SA075803

PATIENT
  Age: 54 Year
  Sex: Male

DRUGS (9)
  1. LASIX [Suspect]
     Route: 048
     Dates: start: 20101120, end: 20101207
  2. CORDARONE [Suspect]
     Route: 048
     Dates: start: 20101121, end: 20101207
  3. CELLCEPT [Suspect]
     Route: 048
     Dates: start: 20101110, end: 20101207
  4. TAHOR [Suspect]
     Route: 048
     Dates: start: 20101115, end: 20101205
  5. BACTRIM [Suspect]
     Route: 048
     Dates: start: 20101124, end: 20101207
  6. PREDNISONE [Suspect]
     Route: 048
     Dates: start: 20101110
  7. CYMEVAN [Suspect]
     Route: 042
     Dates: start: 20101122
  8. ESOMEPRAZOLE [Suspect]
     Route: 048
     Dates: start: 20101115
  9. SANDIMMUNE [Suspect]
     Route: 048
     Dates: start: 20101110

REACTIONS (1)
  - CYTOLYTIC HEPATITIS [None]
